FAERS Safety Report 8103912-0 (Version None)
Quarter: 2012Q1

REPORT INFORMATION
  Report Type: 
  Country: None (occurrence: None)
  Receive Date: 20120201
  Receipt Date: 20120123
  Transmission Date: 20120608
  Serious: Yes (Other)
  Sender: FDA-Public Use
  Company Number: PHHY2012BR006154

PATIENT
  Sex: Male

DRUGS (4)
  1. AMARYL [Concomitant]
  2. GALVUS [Suspect]
     Indication: DIABETES MELLITUS
     Dates: start: 20100101
  3. METFORMIN HCL [Concomitant]
     Dosage: 850 MG, UNK
  4. FORMOTEROL FUMARATE [Suspect]
     Indication: EMPHYSEMA
     Dosage: 1 DF, (12 MG FORMOTEROL / 400 MG BUDESONIDE) BID

REACTIONS (2)
  - DEPRESSION [None]
  - ANXIETY [None]
